FAERS Safety Report 20861325 (Version 1)
Quarter: 2022Q2

REPORT INFORMATION
  Report Type: Report from Study
  Country: CA (occurrence: CA)
  Receive Date: 20220523
  Receipt Date: 20220523
  Transmission Date: 20220721
  Serious: Yes (Hospitalization)
  Sender: FDA-Public Use
  Company Number: CA-JNJFOC-20220414966

PATIENT
  Age: 11 Year
  Sex: Female
  Weight: 34 kg

DRUGS (1)
  1. REMICADE [Suspect]
     Active Substance: INFLIXIMAB
     Indication: Colitis ulcerative
     Dosage: ON 07-APR-2022, PATIENT RECEIVED 400 MG IN 7TH INFUSION OF REMICADE AND COMPLETED PARTIAL MAYO SURVE
     Route: 042
     Dates: start: 20211207

REACTIONS (3)
  - Clostridium difficile infection [Recovered/Resolved]
  - General physical health deterioration [Not Recovered/Not Resolved]
  - Frequent bowel movements [Not Recovered/Not Resolved]

NARRATIVE: CASE EVENT DATE: 20220405
